FAERS Safety Report 11241032 (Version 5)
Quarter: 2017Q1

REPORT INFORMATION
  Report Type: Report from Study
  Country: US (occurrence: US)
  Receive Date: 20150706
  Receipt Date: 20170131
  Transmission Date: 20170428
  Serious: Yes (Other)
  Sender: FDA-Public Use
  Company Number: US-SA-2015SA025464

PATIENT
  Age: 47 Year
  Sex: Female

DRUGS (2)
  1. AMPYRA [Concomitant]
     Active Substance: DALFAMPRIDINE
  2. AUBAGIO [Suspect]
     Active Substance: TERIFLUNOMIDE
     Indication: MULTIPLE SCLEROSIS
     Route: 048
     Dates: start: 20150127, end: 201606

REACTIONS (13)
  - Pain in extremity [Unknown]
  - Diarrhoea [Recovering/Resolving]
  - Product supply issue [Unknown]
  - Blood urine present [Unknown]
  - Alopecia [Unknown]
  - Arthritis [Not Recovered/Not Resolved]
  - Paraesthesia [Unknown]
  - Fatigue [Unknown]
  - Memory impairment [Not Recovered/Not Resolved]
  - Blood pressure increased [Unknown]
  - Urinary tract infection [Unknown]
  - Hypoaesthesia [Not Recovered/Not Resolved]
  - Drug ineffective [Unknown]

NARRATIVE: CASE EVENT DATE: 2015
